FAERS Safety Report 17557407 (Version 3)
Quarter: 2020Q2

REPORT INFORMATION
  Report Type: Spontaneous
  Country: SE (occurrence: SE)
  Receive Date: 20200318
  Receipt Date: 20200617
  Transmission Date: 20200713
  Serious: Yes (Other)
  Sender: FDA-Public Use
  Company Number: SE-PFIZER INC-2020073325

PATIENT
  Age: 58 Year
  Sex: Female
  Weight: 70 kg

DRUGS (6)
  1. OESTRING [Suspect]
     Active Substance: ESTRADIOL
     Indication: MICTURITION URGENCY
     Dosage: UNK
     Dates: start: 202001, end: 2020
  2. ESTROKAD [Suspect]
     Active Substance: ESTRIOL
     Dosage: UNK
  3. OESTRING [Suspect]
     Active Substance: ESTRADIOL
     Indication: MENOPAUSE
  4. OESTRING [Suspect]
     Active Substance: ESTRADIOL
     Indication: HYPERTONIC BLADDER
  5. OESTRING [Suspect]
     Active Substance: ESTRADIOL
     Indication: VULVOVAGINAL DRYNESS
  6. OESTRING [Suspect]
     Active Substance: ESTRADIOL
     Indication: PROLAPSE

REACTIONS (11)
  - Chills [Recovered/Resolved]
  - Hypertension [Recovered/Resolved]
  - Presyncope [Recovered/Resolved]
  - Therapeutic response unexpected [Unknown]
  - Muscle spasms [Recovered/Resolved]
  - Headache [Recovered/Resolved]
  - Malaise [Recovered/Resolved]
  - Arrhythmia [Not Recovered/Not Resolved]
  - Chest discomfort [Recovered/Resolved]
  - Tinnitus [Recovered/Resolved]
  - Head discomfort [Recovered/Resolved]

NARRATIVE: CASE EVENT DATE: 202001
